FAERS Safety Report 5376589-5 (Version None)
Quarter: 2007Q2

REPORT INFORMATION
  Report Type: 
  Country: None (occurrence: None)
  Receive Date: 20070629
  Receipt Date: 20070613
  Transmission Date: 20071010
  Serious: Yes (Hospitalization)
  Sender: FDA-Public Use
  Company Number: 2007BI011165

PATIENT
  Age: 40 Year
  Sex: Female

DRUGS (16)
  1. AVONEX [Suspect]
     Indication: MULTIPLE SCLEROSIS
     Dosage: 30 UG; QW; IM
     Route: 030
     Dates: start: 20041118
  2. METHYLPREDNISOLONE VS PLACEBO [Concomitant]
  3. BUDESONIDE [Concomitant]
  4. IBUPROFEN [Concomitant]
  5. TRAMADOL HCL [Concomitant]
  6. DICLOFENAC [Concomitant]
  7. AMITRIPTYLINE HCL [Concomitant]
  8. GABAPENTIN [Concomitant]
  9. DESLORATADINE [Concomitant]
  10. PREGABALIN [Concomitant]
  11. PARACETAMOL [Concomitant]
  12. INFLUENZA VACCINE [Concomitant]
  13. METHYLPREDNISOLONE [Concomitant]
  14. MODAFINIL [Concomitant]
  15. REDUCTIL [Concomitant]
  16. OXYCODONE HCL [Concomitant]

REACTIONS (3)
  - INSOMNIA [None]
  - INTERVERTEBRAL DISC PROTRUSION [None]
  - NEURALGIA [None]
